FAERS Safety Report 25994955 (Version 2)
Quarter: 2025Q4

REPORT INFORMATION
  Report Type: Spontaneous
  Country: US (occurrence: US)
  Receive Date: 20251104
  Receipt Date: 20251104
  Transmission Date: 20260117
  Serious: Yes (Other)
  Sender: GILEAD
  Company Number: US-GILEAD-2025-0734756

PATIENT
  Sex: Female

DRUGS (7)
  1. EPCLUSA [Suspect]
     Active Substance: SOFOSBUVIR\VELPATASVIR
     Indication: Chronic hepatitis C
     Dosage: 1 DOSAGE FORM, QD
     Route: 048
  2. AMLODIPINE BESYLATE [Concomitant]
     Active Substance: AMLODIPINE BESYLATE
  3. TRIAMTERENE [Concomitant]
     Active Substance: TRIAMTERENE
  4. FAMOTIDINE [Concomitant]
     Active Substance: FAMOTIDINE
  5. POTASSIUM [Concomitant]
     Active Substance: POTASSIUM
  6. LORAZEPAM [Concomitant]
     Active Substance: LORAZEPAM
  7. ASPIRIN [Concomitant]
     Active Substance: ASPIRIN

REACTIONS (2)
  - Hepatitis C [Unknown]
  - Drug ineffective [Unknown]
